FAERS Safety Report 9911948 (Version 1)
Quarter: 2014Q1

REPORT INFORMATION
  Report Type: Spontaneous
  Country: US (occurrence: US)
  Receive Date: 20140219
  Receipt Date: 20140219
  Transmission Date: 20141002
  Serious: No
  Sender: FDA-Public Use
  Company Number: US-MYLANLABS-2013S1023501

PATIENT
  Age: 52 Year
  Sex: Female
  Weight: 44.45 kg

DRUGS (5)
  1. EPIPEN [Suspect]
     Indication: HYPERSENSITIVITY
  2. PROAIR HFA [Concomitant]
  3. SYMBICORT [Concomitant]
  4. SPIRIVA [Concomitant]
  5. LYRICA [Concomitant]

REACTIONS (2)
  - Needle issue [Recovered/Resolved]
  - Injection site pain [Not Recovered/Not Resolved]
